FAERS Safety Report 8307673-1 (Version None)
Quarter: 2012Q2

REPORT INFORMATION
  Report Type: 
  Country: None (occurrence: None)
  Receive Date: 20120424
  Receipt Date: 20120424
  Transmission Date: 20120825
  Serious: Yes (Other)
  Sender: FDA-Public Use
  Company Number: None

PATIENT
  Age: 62 Year
  Sex: Female
  Weight: 58.967 kg

DRUGS (1)
  1. PROLIA [Suspect]
     Indication: BONE LOSS
     Route: 058
     Dates: start: 20101129, end: 20111129

REACTIONS (1)
  - CHOLESTEATOMA [None]
